FAERS Safety Report 6146424-6 (Version None)
Quarter: 2009Q2

REPORT INFORMATION
  Report Type: 
  Country: None (occurrence: None)
  Receive Date: 20090403
  Receipt Date: 20090324
  Transmission Date: 20091009
  Serious: Yes (Other)
  Sender: FDA-Public Use
  Company Number: 2009-193823-NL

PATIENT
  Age: 27 Year
  Sex: Female
  Weight: 54.4 kg

DRUGS (4)
  1. NUVARING [Suspect]
     Indication: CONTRACEPTION
     Dosage: 3 WEEKS IN 1 WEEK OUT
     Dates: start: 20050101, end: 20080101
  2. TOPAMAX [Concomitant]
  3. CLARITIN [Concomitant]
  4. ALLEGRA [Concomitant]

REACTIONS (6)
  - CAESAREAN SECTION [None]
  - CARDIAC MURMUR [None]
  - DRUG EXPOSURE DURING PREGNANCY [None]
  - HELLP SYNDROME [None]
  - PREGNANCY WITH CONTRACEPTIVE DEVICE [None]
  - RESPIRATORY DISORDER NEONATAL [None]
